FAERS Safety Report 5908885-4 (Version None)
Quarter: 2008Q4

REPORT INFORMATION
  Report Type: 
  Country: None (occurrence: None)
  Receive Date: 20081001
  Receipt Date: 20080922
  Transmission Date: 20090506
  Serious: Yes (Hospitalization)
  Sender: FDA-Public Use
  Company Number: FACT0700010

PATIENT
  Age: 28 Year
  Sex: Female

DRUGS (1)
  1. FACTIVE [Suspect]
     Indication: SINUSITIS
     Dosage: 320 MG, QD, ORAL
     Route: 048

REACTIONS (2)
  - PYREXIA [None]
  - RASH MACULO-PAPULAR [None]
